FAERS Safety Report 15350865 (Version 2)
Quarter: 2018Q3

REPORT INFORMATION
  Report Type: Report from Study
  Country: None (occurrence: US)
  Receive Date: 20180905
  Receipt Date: 20180919
  Transmission Date: 20181010
  Serious: Yes (Hospitalization, Other)
  Sender: FDA-Public Use
  Company Number: US-ABBVIE-18K-163-2389547-00

PATIENT
  Age: 45 Year
  Sex: Female

DRUGS (2)
  1. HUMIRA [Suspect]
     Active Substance: ADALIMUMAB
     Indication: RHEUMATOID ARTHRITIS
     Route: 058
  2. HUMIRA [Suspect]
     Active Substance: ADALIMUMAB
     Route: 058

REACTIONS (11)
  - Seizure [Unknown]
  - Hyponatraemia [Unknown]
  - Hypokalaemia [Unknown]
  - Vertigo [Unknown]
  - Bursitis [Recovering/Resolving]
  - Foaming at mouth [Unknown]
  - White blood cell count increased [Unknown]
  - Somnolence [Unknown]
  - Underweight [Unknown]
  - Middle insomnia [Unknown]
  - Drug ineffective [Recovering/Resolving]

NARRATIVE: CASE EVENT DATE: 2017
